FAERS Safety Report 11230270 (Version 2)
Quarter: 2015Q3

REPORT INFORMATION
  Report Type: Spontaneous
  Country: JP (occurrence: None)
  Receive Date: 20150629
  Receipt Date: 20150708
  Transmission Date: 20151125
  Serious: Yes (Hospitalization, Other)
  Sender: FDA-Public Use
  Company Number: JP-2015VAL000416

PATIENT
  Age: 59 Year
  Sex: Female

DRUGS (2)
  1. CORTISOL (HYDROCORTISONE) [Concomitant]
  2. BROMOCRIPTINE MESYLATE (BROMOCRIPTINE MESYLATE) UNKNOWN [Suspect]
     Active Substance: BROMOCRIPTINE MESYLATE
     Indication: PITUITARY TUMOUR BENIGN

REACTIONS (2)
  - Malignant neoplasm progression [None]
  - Insulinoma [None]
